FAERS Safety Report 11220323 (Version 1)
Quarter: 2015Q2

REPORT INFORMATION
  Report Type: Spontaneous
  Country: US (occurrence: None)
  Receive Date: 20150625
  Receipt Date: 20150625
  Transmission Date: 20150821
  Serious: Yes (Death, Hospitalization)
  Sender: FDA-Public Use
  Company Number: None

PATIENT
  Age: 74 Year
  Sex: Female
  Weight: 32.3 kg

DRUGS (2)
  1. CARBOPLATIN. [Suspect]
     Active Substance: CARBOPLATIN
     Dates: start: 20140602
  2. TAXOL [Suspect]
     Active Substance: PACLITAXEL
     Dates: start: 20140602

REACTIONS (4)
  - Pneumonia [None]
  - Back pain [None]
  - Malignant neoplasm progression [None]
  - Performance status decreased [None]

NARRATIVE: CASE EVENT DATE: 20140708
